FAERS Safety Report 20553424 (Version 1)
Quarter: 2022Q1

REPORT INFORMATION
  Report Type: Spontaneous
  Country: US (occurrence: None)
  Receive Date: 20220304
  Receipt Date: 20220304
  Transmission Date: 20220423
  Serious: No
  Sender: FDA-Public Use
  Company Number: None

PATIENT
  Sex: Female

DRUGS (1)
  1. FORTEO [Suspect]
     Active Substance: TERIPARATIDE
     Indication: Osteoporosis
     Dosage: FREQUENCY : DAILY;?
     Route: 058
     Dates: start: 20220107

REACTIONS (6)
  - Myalgia [None]
  - Bone pain [None]
  - Therapy interrupted [None]
  - Self-medication [None]
  - Intentional product use issue [None]
  - Incorrect dose administered [None]
